FAERS Safety Report 21369839 (Version 1)
Quarter: 2022Q3

REPORT INFORMATION
  Report Type: Spontaneous
  Country: US (occurrence: None)
  Receive Date: 20220923
  Receipt Date: 20220923
  Transmission Date: 20221027
  Serious: Yes (Life-Threatening, Hospitalization, Other)
  Sender: FDA-Public Use
  Company Number: US-MLMSERVICE-20220902-3769139-1

PATIENT
  Age: 8 Year
  Sex: Female
  Weight: 26 kg

DRUGS (2)
  1. AMLODIPINE BESYLATE [Suspect]
     Active Substance: AMLODIPINE BESYLATE
     Indication: Product used for unknown indication
     Route: 048
  2. AMITRIPTYLINE [Concomitant]
     Active Substance: AMITRIPTYLINE
     Indication: Cyclic vomiting syndrome
     Dosage: 40 MG NIGHTLY (10 MG TABLETS X 4)
     Route: 065

REACTIONS (3)
  - Sinus tachycardia [Recovered/Resolved]
  - Accidental overdose [Recovered/Resolved]
  - Product dispensing error [Recovered/Resolved]
